FAERS Safety Report 4275205-3 (Version None)
Quarter: 2004Q1

REPORT INFORMATION
  Report Type: 
  Country: None (occurrence: None)
  Receive Date: 20040116
  Receipt Date: 20040107
  Transmission Date: 20041129
  Serious: Yes (Other)
  Sender: FDA-Public Use
  Company Number: HQWYE190508JAN04

PATIENT
  Age: 49 Year
  Sex: Female

DRUGS (1)
  1. EFFEXOR [Suspect]
     Indication: FATIGUE
     Dosage: BEGAN AT 37.5 MG, T HEN 75 MG, THEN 150 MG AND THEN WEANES OFF, ORAL
     Route: 048
     Dates: start: 19960101

REACTIONS (13)
  - ACTIVITIES OF DAILY LIVING IMPAIRED [None]
  - DRUG WITHDRAWAL SYNDROME [None]
  - ECONOMIC PROBLEM [None]
  - EMOTIONAL DISTRESS [None]
  - FEAR [None]
  - FEAR OF DISEASE [None]
  - INDIFFERENCE [None]
  - INTENTIONAL SELF-INJURY [None]
  - LEGAL PROBLEM [None]
  - MEMORY IMPAIRMENT [None]
  - MYOCARDIAL INFARCTION [None]
  - SERUM SEROTONIN DECREASED [None]
  - TREMOR [None]
